FAERS Safety Report 9428909 (Version 1)
Quarter: 2013Q3

REPORT INFORMATION
  Report Type: Spontaneous
  Country: US (occurrence: US)
  Receive Date: 20130730
  Receipt Date: 20130730
  Transmission Date: 20140515
  Serious: No
  Sender: FDA-Public Use
  Company Number: US-ABBOTT-13P-163-1041778-00

PATIENT
  Age: 62 Year
  Sex: Male
  Weight: 83.99 kg

DRUGS (6)
  1. NIASPAN (COATED) [Suspect]
     Indication: PRODUCT USED FOR UNKNOWN INDICATION
     Route: 048
     Dates: start: 20130124
  2. AVALIDE [Concomitant]
     Indication: HYPERTENSION
  3. SECTRAL [Concomitant]
     Indication: CARDIAC DISORDER
  4. CADUET [Concomitant]
     Indication: BLOOD CHOLESTEROL INCREASED
  5. BABY ASPIRIN [Concomitant]
     Indication: CARDIAC DISORDER
  6. PLAVIX [Concomitant]
     Indication: CARDIAC DISORDER

REACTIONS (2)
  - Pruritus generalised [Recovered/Resolved]
  - Feeling hot [Recovered/Resolved]
